FAERS Safety Report 4662501-0 (Version None)
Quarter: 2005Q2

REPORT INFORMATION
  Report Type: 
  Country: None (occurrence: None)
  Receive Date: 20050516
  Receipt Date: 20050405
  Transmission Date: 20051028
  Serious: Yes (Other)
  Sender: FDA-Public Use
  Company Number: JP-ROCHE-401609

PATIENT
  Age: 62 Year
  Sex: Male

DRUGS (12)
  1. VESANOID [Suspect]
     Indication: ACUTE PROMYELOCYTIC LEUKAEMIA
     Dosage: REPORTED AS 3-3-2
     Route: 048
     Dates: start: 20050315
  2. MAXIPIME [Concomitant]
     Dosage: ADMINISTERED 12 - 22 MARCH AND 28 MARCH TO 2 APRIL 2005
     Route: 041
     Dates: start: 20050312, end: 20050402
  3. LENDORM [Concomitant]
     Route: 048
     Dates: start: 20050314, end: 20050405
  4. GASTER [Concomitant]
     Route: 048
     Dates: start: 20050315, end: 20050406
  5. LASIX [Concomitant]
     Route: 041
     Dates: start: 20050317, end: 20050321
  6. PREDONINE [Concomitant]
     Route: 041
     Dates: start: 20050328, end: 20050401
  7. MEROPEN [Concomitant]
     Route: 041
     Dates: start: 20050403, end: 20050405
  8. CIPROXAN [Concomitant]
     Route: 042
     Dates: start: 20050405, end: 20050410
  9. VANCOMYCIN [Concomitant]
     Route: 042
     Dates: start: 20050405
  10. ULCERMIN [Concomitant]
     Route: 048
     Dates: start: 20050406
  11. PRIMAXIN [Concomitant]
     Route: 042
     Dates: start: 20050410
  12. FUNGUARD [Concomitant]
     Route: 042
     Dates: start: 20050410

REACTIONS (5)
  - ARTHRALGIA [None]
  - ARTHRITIS BACTERIAL [None]
  - BONE PAIN [None]
  - PYREXIA [None]
  - SEPSIS [None]
